FAERS Safety Report 9705369 (Version 2)
Quarter: 2013Q4

REPORT INFORMATION
  Report Type: Report from Study
  Country: AU (occurrence: AU)
  Receive Date: 20131122
  Receipt Date: 20131204
  Transmission Date: 20140711
  Serious: Yes (Other)
  Sender: FDA-Public Use
  Company Number: PHHY2013AU133817

PATIENT
  Age: 75 Year
  Sex: Female

DRUGS (6)
  1. ACLASTA [Suspect]
     Dosage: 5 MG,
     Route: 042
     Dates: start: 20111109
  2. ACLASTA [Suspect]
     Dosage: 5 MG,
     Route: 042
     Dates: start: 20121008
  3. ACLASTA [Suspect]
     Dosage: 5 MG,
     Route: 042
     Dates: start: 20131120
  4. ANTIHYPERTENSIVES [Concomitant]
     Indication: HYPERTENSION
     Dosage: UNK
  5. ALPHAPRESS [Concomitant]
     Indication: HYPERTENSION
     Dosage: 25 MG, BID
  6. OSTELIN [Concomitant]
     Indication: OSTEOPOROSIS
     Dosage: 1000 U, UNK

REACTIONS (2)
  - Eye haemorrhage [Not Recovered/Not Resolved]
  - Blood pressure increased [Not Recovered/Not Resolved]
